FAERS Safety Report 18740491 (Version 2)
Quarter: 2021Q1

REPORT INFORMATION
  Report Type: Spontaneous
  Country: US (occurrence: US)
  Receive Date: 20210114
  Receipt Date: 20210317
  Transmission Date: 20210419
  Serious: No
  Sender: FDA-Public Use
  Company Number: NVSC2021US007301

PATIENT
  Sex: Female

DRUGS (1)
  1. VIVELLE?DOT [Suspect]
     Active Substance: ESTRADIOL
     Indication: PRODUCT USED FOR UNKNOWN INDICATION
     Dosage: 0.1 MG
     Route: 065

REACTIONS (4)
  - COVID-19 [Unknown]
  - Product adhesion issue [Unknown]
  - Dyspnoea [Unknown]
  - Speech disorder [Unknown]
